FAERS Safety Report 8077758-6 (Version None)
Quarter: 2012Q1

REPORT INFORMATION
  Report Type: 
  Country: None (occurrence: None)
  Receive Date: 20120127
  Receipt Date: 20120126
  Transmission Date: 20120608
  Serious: Yes (Other)
  Sender: FDA-Public Use
  Company Number: US-BAYER-2012-008876

PATIENT
  Age: 38 Year
  Sex: Male

DRUGS (1)
  1. ULTRAVIST 150 [Suspect]
     Indication: COMPUTERISED TOMOGRAM ABDOMEN
     Dosage: 100 ML, ONCE
     Route: 042
     Dates: start: 20120125, end: 20120125

REACTIONS (6)
  - TREMOR [None]
  - DYSPNOEA [None]
  - NASAL CONGESTION [None]
  - EYE SWELLING [None]
  - CHILLS [None]
  - EYE PRURITUS [None]
